FAERS Safety Report 6111962-9 (Version None)
Quarter: 2009Q1

REPORT INFORMATION
  Report Type: 
  Country: None (occurrence: None)
  Receive Date: 20090311
  Receipt Date: 20090303
  Transmission Date: 20090719
  Serious: Yes (Hospitalization)
  Sender: FDA-Public Use
  Company Number: US-B.I. PHARMACEUTICALS,INC./RIDGEFIELD-2009-BP-02617BP

PATIENT
  Sex: Male

DRUGS (2)
  1. SPIRIVA [Suspect]
  2. ALBUTEROL SULFATE [Concomitant]
     Indication: DYSPNOEA

REACTIONS (1)
  - PNEUMONIA FUNGAL [None]
